FAERS Safety Report 18116224 (Version 1)
Quarter: 2020Q3

REPORT INFORMATION
  Report Type: Spontaneous
  Country: GB (occurrence: GB)
  Receive Date: 20200806
  Receipt Date: 20200806
  Transmission Date: 20201103
  Serious: Yes (Hospitalization)
  Sender: FDA-Public Use
  Company Number: GB-ROCHE-2654075

PATIENT
  Sex: Female

DRUGS (2)
  1. COLOBREATHE [Concomitant]
     Active Substance: COLISTIMETHATE SODIUM
  2. PULMOZYME [Suspect]
     Active Substance: DORNASE ALFA
     Indication: INTENTIONAL PRODUCT USE ISSUE
     Dosage: STRENGTH: 2500 (UNIT NOT REPORTED)
     Route: 065

REACTIONS (1)
  - Malaise [Unknown]
